FAERS Safety Report 24659578 (Version 1)
Quarter: 2024Q4

REPORT INFORMATION
  Report Type: Spontaneous
  Country: DE (occurrence: DE)
  Receive Date: 20241125
  Receipt Date: 20241125
  Transmission Date: 20250115
  Serious: Yes (Hospitalization)
  Sender: ROCHE
  Company Number: DE-ROCHE-3545399

PATIENT
  Sex: Female

DRUGS (1)
  1. KADCYLA [Suspect]
     Active Substance: ADO-TRASTUZUMAB EMTANSINE
     Indication: Breast cancer
     Route: 065

REACTIONS (11)
  - Gastritis [Recovering/Resolving]
  - Intestinal metaplasia [Recovering/Resolving]
  - Chronic gastritis [Recovering/Resolving]
  - Hypertension [Recovering/Resolving]
  - Dehydration [Recovering/Resolving]
  - Vomiting [Recovering/Resolving]
  - Hiatus hernia [Recovering/Resolving]
  - Helicobacter test positive [Recovering/Resolving]
  - Oedema peripheral [Recovering/Resolving]
  - Pseudopolyp [Recovering/Resolving]
  - Gastritis [Recovering/Resolving]
